FAERS Safety Report 6669324-1 (Version None)
Quarter: 2010Q2

REPORT INFORMATION
  Report Type: 
  Country: None (occurrence: None)
  Receive Date: 20100406
  Receipt Date: 20100405
  Transmission Date: 20101027
  Serious: Yes (Life-Threatening, Hospitalization)
  Sender: FDA-Public Use
  Company Number: A0665821A

PATIENT
  Age: 55 Year
  Sex: Male

DRUGS (25)
  1. AVANDIA [Suspect]
     Dosage: 8MG PER DAY
     Route: 048
     Dates: start: 19980101, end: 20070610
  2. ALBUTEROL [Concomitant]
  3. ASPIRIN [Concomitant]
  4. ATENOLOL [Concomitant]
  5. CARBOXYMETHYLCELLULOSE [Concomitant]
  6. CHLORHEXIDINE GLUCONATE [Concomitant]
  7. GLUCONATE [Concomitant]
  8. CITALOPRAM HYDROBROMIDE [Concomitant]
  9. CODEINE SULFATE [Concomitant]
  10. CYANOCOBALAMIN [Concomitant]
  11. FERROUS SULFATE TAB [Concomitant]
  12. FISH OIL [Concomitant]
  13. FLUVASTATIN [Concomitant]
  14. FOSINOPRIL SODIUM [Concomitant]
  15. FUROSEMIDE [Concomitant]
  16. GLYBURIDE [Concomitant]
  17. IPRATROPIUM BROMIDE [Concomitant]
  18. METFORMIN HCL [Concomitant]
  19. MOMETASONE FUROATE [Concomitant]
  20. POTASSIUM CHLORIDE [Concomitant]
  21. SALMETEROL [Concomitant]
  22. SPIRONOLACTONE [Concomitant]
  23. TRAMADOL [Concomitant]
  24. TRAZODONE HCL [Concomitant]
  25. WARFARIN SODIUM [Concomitant]

REACTIONS (11)
  - ABDOMINAL DISTENSION [None]
  - CARDIAC DISORDER [None]
  - CARDIAC FAILURE CONGESTIVE [None]
  - CARDIAC PACEMAKER INSERTION [None]
  - DISABILITY [None]
  - ENDOTRACHEAL INTUBATION [None]
  - LOCAL SWELLING [None]
  - OEDEMA PERIPHERAL [None]
  - SLEEP APNOEA SYNDROME [None]
  - TERMINAL STATE [None]
  - TESTICULAR SWELLING [None]
